FAERS Safety Report 9053619 (Version 1)
Quarter: 2013Q1

REPORT INFORMATION
  Report Type: Spontaneous
  Country: US (occurrence: None)
  Receive Date: 20130201
  Receipt Date: 20130201
  Transmission Date: 20140127
  Serious: Yes (Hospitalization)
  Sender: FDA-Public Use
  Company Number: None

PATIENT
  Age: 34 Year
  Sex: Female
  Weight: 94.8 kg

DRUGS (1)
  1. MACROBID [Suspect]
     Indication: URINARY TRACT INFECTION
     Route: 048
     Dates: start: 20130117, end: 20130130

REACTIONS (5)
  - Hypersensitivity [None]
  - Musculoskeletal stiffness [None]
  - Urticaria [None]
  - Pyrexia [None]
  - Weight decreased [None]
